FAERS Safety Report 4444570-6 (Version None)
Quarter: 2004Q3

REPORT INFORMATION
  Report Type: 
  Country: None (occurrence: None)
  Receive Date: 20040909
  Receipt Date: 20040804
  Transmission Date: 20050211
  Serious: Yes (Life-Threatening, Hospitalization, Other)
  Sender: FDA-Public Use
  Company Number: US-BRISTOL-MYERS SQUIBB COMPANY-12661070

PATIENT
  Age: 63 Year
  Sex: Male
  Weight: 51 kg

DRUGS (5)
  1. ERBITUX [Suspect]
     Indication: NEOPLASM MALIGNANT
     Dosage: INITIAL DOSE
     Route: 042
     Dates: start: 20040803, end: 20040803
  2. BENADRYL [Concomitant]
     Indication: PREMEDICATION
     Dates: start: 20040803, end: 20040803
  3. KYTRIL [Concomitant]
     Indication: PREMEDICATION
     Dates: start: 20040803, end: 20040803
  4. ZANTAC [Concomitant]
     Indication: PREMEDICATION
     Dates: start: 20040803, end: 20040803
  5. HYDROCODONE [Concomitant]
     Indication: PAIN
     Dosage: 2 TO 2 1/2 HOUR BEFORE RECEIVING ERBITUX.
     Dates: start: 20040803, end: 20040803

REACTIONS (3)
  - CHEST PAIN [None]
  - FLUSHING [None]
  - RESPIRATORY ARREST [None]
